FAERS Safety Report 9181615 (Version 1)
Quarter: 2013Q1

REPORT INFORMATION
  Report Type: Spontaneous
  Country: US (occurrence: US)
  Receive Date: 20130322
  Receipt Date: 20130322
  Transmission Date: 20140127
  Serious: Yes (Hospitalization)
  Sender: FDA-Public Use
  Company Number: US-BAYER-2013-033906

PATIENT
  Age: 39 Year
  Sex: Female
  Weight: 58.96 kg

DRUGS (2)
  1. YASMIN [Suspect]
  2. PAXIL [Concomitant]
     Dosage: UNK
     Dates: start: 20030114

REACTIONS (2)
  - Deep vein thrombosis [None]
  - Pelvic venous thrombosis [None]
